FAERS Safety Report 7452434-9 (Version None)
Quarter: 2011Q2

REPORT INFORMATION
  Report Type: 
  Country: None (occurrence: None)
  Receive Date: 20110502
  Receipt Date: 20101027
  Transmission Date: 20111010
  Serious: No
  Sender: FDA-Public Use
  Company Number: US-ASTRAZENECA-2010SE47252

PATIENT
  Age: 21396 Day
  Sex: Male
  Weight: 113.4 kg

DRUGS (3)
  1. NEXIUM [Suspect]
     Indication: GASTRIC ULCER
     Route: 048
     Dates: start: 20071101, end: 20071130
  2. NEXIUM [Suspect]
     Route: 048
  3. MOTRIN [Concomitant]
     Indication: ARTHRALGIA

REACTIONS (5)
  - GASTROOESOPHAGEAL REFLUX DISEASE [None]
  - ABDOMINAL DISTENSION [None]
  - DIZZINESS [None]
  - FEELING ABNORMAL [None]
  - FLATULENCE [None]
